FAERS Safety Report 4553993-6 (Version None)
Quarter: 2005Q1

REPORT INFORMATION
  Report Type: 
  Country: None (occurrence: None)
  Receive Date: 20050113
  Receipt Date: 20050113
  Transmission Date: 20050727
  Serious: Yes (Hospitalization, Other)
  Sender: FDA-Public Use
  Company Number: None

PATIENT
  Age: 53 Year
  Sex: Female
  Weight: 104.3273 kg

DRUGS (6)
  1. CORICIDIN D SRT [Suspect]
     Indication: NASOPHARYNGITIS
     Dosage: INTERMITTENT ORAL
     Route: 048
     Dates: start: 19800101, end: 19990518
  2. DEXATRIM TABLETS [Suspect]
     Indication: WEIGHT DECREASED
     Dosage: INTERMITTENT ORAL
     Route: 048
     Dates: start: 19740101, end: 19990518
  3. ELAVIL [Concomitant]
  4. MEVACOR [Concomitant]
  5. ZOCOR [Concomitant]
  6. ANTIHYPERTENSIVE AGENT (NOS) [Concomitant]

REACTIONS (4)
  - ANXIETY [None]
  - BLOOD PRESSURE INCREASED [None]
  - CEREBRAL HAEMORRHAGE [None]
  - EMOTIONAL DISTRESS [None]
